FAERS Safety Report 11440886 (Version 1)
Quarter: 2015Q3

REPORT INFORMATION
  Report Type: Spontaneous
  Country: US (occurrence: US)
  Receive Date: 20150901
  Receipt Date: 20150901
  Transmission Date: 20151125
  Serious: No
  Sender: FDA-Public Use
  Company Number: US-ROCHE-1100250

PATIENT
  Sex: Male

DRUGS (5)
  1. PEGASYS [Suspect]
     Active Substance: PEGINTERFERON ALFA-2A
     Dosage: CURRENT THERAPY FOR 24 WEEKS.
     Route: 058
     Dates: start: 20120404
  2. PEGASYS [Suspect]
     Active Substance: PEGINTERFERON ALFA-2A
     Indication: CHRONIC HEPATITIS C
     Dosage: THERAPY FOR 48 WEEKS.
     Route: 058
     Dates: start: 2005
  3. RIBAVIRIN. [Suspect]
     Active Substance: RIBAVIRIN
     Indication: CHRONIC HEPATITIS C
     Dosage: THERAPY FOR 48 WEEKS.
     Route: 065
     Dates: start: 2005
  4. INCIVEK [Suspect]
     Active Substance: TELAPREVIR
     Indication: CHRONIC HEPATITIS C
     Route: 065
     Dates: start: 20120404, end: 20120706
  5. RIBAVIRIN. [Suspect]
     Active Substance: RIBAVIRIN
     Dosage: IN DIVIDED DOSES CURRENT THERAPY FOR 24 FOR WEEKS.
     Route: 048
     Dates: start: 20120404

REACTIONS (1)
  - Dental alveolar anomaly [Unknown]
